FAERS Safety Report 8506608-6 (Version None)
Quarter: 2012Q3

REPORT INFORMATION
  Report Type: 
  Country: None (occurrence: None)
  Receive Date: 20120712
  Receipt Date: 20120703
  Transmission Date: 20120928
  Serious: Yes (Hospitalization)
  Sender: FDA-Public Use
  Company Number: US-ACTELION-A-US2012-66173

PATIENT

DRUGS (7)
  1. IRON [Concomitant]
  2. GLEEVEC [Concomitant]
  3. SILDENAFIL [Concomitant]
  4. AMOXICILLIN [Concomitant]
  5. SUCRALFATE [Concomitant]
  6. TRACLEER [Suspect]
     Indication: PULMONARY ARTERIAL HYPERTENSION
     Dosage: 125 MG, BID
     Route: 048
  7. FLOLAN [Concomitant]

REACTIONS (3)
  - HYDROCELE OPERATION [None]
  - VITAMIN D DECREASED [None]
  - HYDROCELE [None]
